FAERS Safety Report 11850482 (Version 1)
Quarter: 2015Q4

REPORT INFORMATION
  Report Type: Spontaneous
  Country: US (occurrence: US)
  Receive Date: 20151218
  Receipt Date: 20151218
  Transmission Date: 20160305
  Serious: No
  Sender: FDA-Public Use
  Company Number: US-JNJFOC-20151126604

PATIENT
  Age: 24 Month
  Sex: Male
  Weight: 15.88 kg

DRUGS (2)
  1. CHILDRENS MOTRIN [Suspect]
     Active Substance: IBUPROFEN
     Route: 048
  2. CHILDRENS MOTRIN [Suspect]
     Active Substance: IBUPROFEN
     Indication: MEDICATION ERROR
     Route: 048
     Dates: start: 20151127, end: 20151127

REACTIONS (3)
  - Extra dose administered [Unknown]
  - Failure of child resistant mechanism for pharmaceutical product [Unknown]
  - Accidental exposure to product by child [Unknown]
